FAERS Safety Report 6491977-1 (Version None)
Quarter: 2009Q4

REPORT INFORMATION
  Report Type: 
  Country: None (occurrence: None)
  Receive Date: 20091208
  Receipt Date: 20091124
  Transmission Date: 20100525
  Serious: No
  Sender: FDA-Public Use
  Company Number: APP200900853

PATIENT
  Age: 30 Year
  Sex: Female

DRUGS (5)
  1. ETOPOSIDE [Suspect]
     Indication: CHORIOCARCINOMA
  2. METHOTREXATE [Suspect]
     Indication: CHORIOCARCINOMA
  3. ACTINOMYCIN D [Concomitant]
  4. CYCLOPHOSPHAMIDE [Concomitant]
  5. VINCRISTINE [Concomitant]

REACTIONS (5)
  - BRAIN OEDEMA [None]
  - CEREBRAL INFARCTION [None]
  - CEREBRAL VENOUS THROMBOSIS [None]
  - GRAND MAL CONVULSION [None]
  - HEMIPARESIS [None]
